FAERS Safety Report 12422775 (Version 2)
Quarter: 2016Q3

REPORT INFORMATION
  Report Type: Report from Study
  Country: US (occurrence: US)
  Receive Date: 20160601
  Receipt Date: 20160915
  Transmission Date: 20161109
  Serious: Yes (Death, Other)
  Sender: FDA-Public Use
  Company Number: US-ASTRAZENECA-2016SE56331

PATIENT
  Sex: Female

DRUGS (10)
  1. FENTANYL. [Concomitant]
     Active Substance: FENTANYL
  2. AMITRIPTYLINE [Concomitant]
     Active Substance: AMITRIPTYLINE
  3. NAPROXEN. [Concomitant]
     Active Substance: NAPROXEN
     Dosage: 2 DF, EVERY 8 HOURS AS NEEDED
  4. ZOFRAN [Concomitant]
     Active Substance: ONDANSETRON HYDROCHLORIDE
     Indication: VOMITING
     Dosage: ONE TABLET EVERY 8 HOURS AS NEEDED
  5. ZOFRAN [Concomitant]
     Active Substance: ONDANSETRON HYDROCHLORIDE
     Indication: NAUSEA
     Dosage: ONE TABLET EVERY 8 HOURS AS NEEDED
  6. LYNPARZA [Suspect]
     Active Substance: OLAPARIB
     Indication: OVARIAN CANCER
     Dosage: 400 MG, TWICE DAILY (50 MG, 8 DF WICE)
     Route: 048
     Dates: start: 20151210
  7. NORCO [Concomitant]
     Active Substance: ACETAMINOPHEN\HYDROCODONE BITARTRATE
     Indication: PAIN
     Dosage: 5/25, 1 TABLET, EVERY 6 HOURS AS NEEDED
  8. REGLAN [Concomitant]
     Active Substance: METOCLOPRAMIDE HYDROCHLORIDE
  9. LOVENOX [Concomitant]
     Active Substance: ENOXAPARIN SODIUM
  10. BENADRYL [Concomitant]
     Active Substance: DIPHENHYDRAMINE HYDROCHLORIDE
     Indication: HYPERSENSITIVITY
     Dosage: AS NEEDED

REACTIONS (15)
  - Death [Fatal]
  - Metastases to lung [Unknown]
  - Nasopharyngitis [Unknown]
  - Abdominal distension [Unknown]
  - Nausea [Unknown]
  - Dehydration [Unknown]
  - Back pain [Unknown]
  - Malignant pleural effusion [Unknown]
  - Cough [Unknown]
  - Vomiting [Unknown]
  - Weight decreased [Unknown]
  - Intra-abdominal fluid collection [Unknown]
  - Metastases to bone [Unknown]
  - Pericardial effusion [Unknown]
  - Pulmonary mass [Unknown]
